FAERS Safety Report 23709428 (Version 1)
Quarter: 2024Q2

REPORT INFORMATION
  Report Type: Spontaneous
  Country: CA (occurrence: CA)
  Receive Date: 20240404
  Receipt Date: 20240404
  Transmission Date: 20240715
  Serious: Yes (Hospitalization)
  Sender: FDA-Public Use
  Company Number: CA-TEVA-VS-3178691

PATIENT
  Age: 18 Month
  Sex: Male
  Weight: 11 kg

DRUGS (3)
  1. AMOXICILLIN [Suspect]
     Active Substance: AMOXICILLIN
     Indication: Product used for unknown indication
     Route: 048
  2. ACETAMINOPHEN [Concomitant]
     Active Substance: ACETAMINOPHEN
     Indication: Product used for unknown indication
     Route: 065
  3. POLYETHYLENE GLYCOL [Concomitant]
     Active Substance: POLYETHYLENE GLYCOL
     Indication: Product used for unknown indication
     Route: 065

REACTIONS (5)
  - Face oedema [Recovered/Resolved]
  - Oedema peripheral [Recovered/Resolved]
  - Pruritus [Recovered/Resolved]
  - Serum sickness-like reaction [Recovered/Resolved]
  - Urticaria [Recovered/Resolved]
